FAERS Safety Report 17183766 (Version 1)
Quarter: 2019Q4

REPORT INFORMATION
  Report Type: Spontaneous
  Country: CA (occurrence: CA)
  Receive Date: 20191220
  Receipt Date: 20191220
  Transmission Date: 20200122
  Serious: Yes (Death, Hospitalization, Other)
  Sender: FDA-Public Use
  Company Number: CA-DRREDDYS-USA/CAN/19/0117702

PATIENT
  Age: 50 Year
  Sex: Male

DRUGS (4)
  1. BORTEZOMIB. [Suspect]
     Active Substance: BORTEZOMIB
     Indication: PLASMA CELL MYELOMA
     Route: 065
  2. PROCYTOX [Suspect]
     Active Substance: CYCLOPHOSPHAMIDE
     Indication: PLASMA CELL MYELOMA
     Dosage: POWDER FOR SOLUTION INTRAVENOUS
  3. THALIDOMIDE [Suspect]
     Active Substance: THALIDOMIDE
     Indication: PLASMA CELL MYELOMA
     Route: 048
  4. DEXAMETHASONE. [Suspect]
     Active Substance: DEXAMETHASONE
     Indication: PLASMA CELL MYELOMA
     Route: 065

REACTIONS (5)
  - Epistaxis [Fatal]
  - Plasmacytoma [Fatal]
  - Pneumonia [Fatal]
  - Thrombocytopenia [Fatal]
  - Renal failure [Fatal]
